FAERS Safety Report 10336327 (Version 1)
Quarter: 2014Q3

REPORT INFORMATION
  Report Type: Spontaneous
  Country: US (occurrence: US)
  Receive Date: 20140723
  Receipt Date: 20140723
  Transmission Date: 20150326
  Serious: No
  Sender: FDA-Public Use
  Company Number: US-BRISTOL-MYERS SQUIBB COMPANY-20107538

PATIENT
  Age: 76 Year
  Sex: Male
  Weight: 104.31 kg

DRUGS (3)
  1. ZESTRIL [Concomitant]
     Active Substance: LISINOPRIL
  2. WARFARIN SODIUM. [Suspect]
     Active Substance: WARFARIN SODIUM
     Dates: end: 2013
  3. ZOCOR [Concomitant]
     Active Substance: SIMVASTATIN

REACTIONS (1)
  - International normalised ratio increased [Unknown]
